FAERS Safety Report 4268077-4 (Version None)
Quarter: 2004Q1

REPORT INFORMATION
  Report Type: 
  Country: None (occurrence: None)
  Receive Date: 20040109
  Receipt Date: 20040109
  Transmission Date: 20041129
  Serious: Yes (Hospitalization)
  Sender: FDA-Public Use
  Company Number: None

PATIENT
  Age: 12 Year
  Sex: Female
  Weight: 104 kg

DRUGS (1)
  1. VESINOID (ATRA) 10 MG STRENGTH [Suspect]
     Indication: ACUTE PROMYELOCYTIC LEUKAEMIA
     Dosage: 50 MG PO BID
     Route: 048
     Dates: start: 20031215

REACTIONS (5)
  - CRANIAL NERVE PARALYSIS [None]
  - DIPLOPIA [None]
  - EYE PAIN [None]
  - HEADACHE [None]
  - PHOTOPHOBIA [None]
